FAERS Safety Report 25834477 (Version 1)
Quarter: 2025Q3

REPORT INFORMATION
  Report Type: Spontaneous
  Country: TR (occurrence: TR)
  Receive Date: 20250923
  Receipt Date: 20250923
  Transmission Date: 20251020
  Serious: Yes (Other)
  Sender: ORGANON
  Company Number: TR-ORGANON-O2509TUR001550

PATIENT
  Age: 52 Year
  Sex: Male

DRUGS (1)
  1. DIPROSPAN [Suspect]
     Active Substance: BETAMETHASONE DIPROPIONATE\BETAMETHASONE SODIUM PHOSPHATE

REACTIONS (4)
  - Alopecia [Unknown]
  - Eye disorder [Unknown]
  - Myalgia [Unknown]
  - Inappropriate schedule of product administration [Unknown]
